FAERS Safety Report 9525399 (Version 1)
Quarter: 2013Q3

REPORT INFORMATION
  Report Type: Spontaneous
  Country: JP (occurrence: JP)
  Receive Date: 20130916
  Receipt Date: 20130916
  Transmission Date: 20140515
  Serious: Yes (Life-Threatening, Hospitalization)
  Sender: FDA-Public Use
  Company Number: JP-EISAI INC-E2020-12862-SPO-JP

PATIENT
  Age: 73 Year
  Sex: Male
  Weight: 60 kg

DRUGS (3)
  1. ARICEPT [Suspect]
     Indication: DEMENTIA ALZHEIMER^S TYPE
     Dates: end: 20130907
  2. MUCOSOLVAN L [Concomitant]
     Dosage: UNKNOWN
     Route: 048
  3. URIEF [Concomitant]
     Dosage: UNKNOWN
     Route: 048

REACTIONS (2)
  - Altered state of consciousness [Recovering/Resolving]
  - Sinus bradycardia [Recovered/Resolved]
